FAERS Safety Report 10497301 (Version 1)
Quarter: 2014Q4

REPORT INFORMATION
  Report Type: Spontaneous
  Country: FR (occurrence: FR)
  Receive Date: 20141006
  Receipt Date: 20141006
  Transmission Date: 20150528
  Serious: Yes (Life-Threatening, Hospitalization, Other)
  Sender: FDA-Public Use
  Company Number: FR-RANBAXY-2014RR-86239

PATIENT
  Sex: Female

DRUGS (1)
  1. PARACETAMOL [Suspect]
     Active Substance: ACETAMINOPHEN
     Indication: PRODUCT USED FOR UNKNOWN INDICATION
     Dosage: UNK
     Route: 048

REACTIONS (9)
  - Acute hepatic failure [Recovered/Resolved]
  - Multi-organ failure [Recovering/Resolving]
  - Shock [Recovering/Resolving]
  - Musculoskeletal stiffness [Unknown]
  - Coma [Recovering/Resolving]
  - Colon injury [Recovering/Resolving]
  - Blood creatine phosphokinase increased [Unknown]
  - Blood lactic acid increased [Recovering/Resolving]
  - Poisoning deliberate [Recovering/Resolving]
